FAERS Safety Report 6389245-1 (Version None)
Quarter: 2009Q4

REPORT INFORMATION
  Report Type: 
  Country: None (occurrence: None)
  Receive Date: 20091006
  Receipt Date: 20090925
  Transmission Date: 20100525
  Serious: Yes (Other)
  Sender: FDA-Public Use
  Company Number: PHHY2009MX41364

PATIENT
  Age: 67 Year
  Sex: Male

DRUGS (1)
  1. DIOVAN HCT [Suspect]
     Indication: HYPERTENSION
     Dosage: 1 TABLET  (160/25MG) PER DAY
     Route: 048
     Dates: start: 20060401, end: 20090701

REACTIONS (4)
  - KIDNEY ENLARGEMENT [None]
  - KIDNEY INFECTION [None]
  - NAUSEA [None]
  - VOMITING [None]
